FAERS Safety Report 9433202 (Version 1)
Quarter: 2013Q3

REPORT INFORMATION
  Report Type: Spontaneous
  Country: US (occurrence: US)
  Receive Date: 20130731
  Receipt Date: 20130731
  Transmission Date: 20140515
  Serious: Yes (Hospitalization)
  Sender: FDA-Public Use
  Company Number: GXBR2013US001473

PATIENT
  Age: 71 Year
  Sex: Female

DRUGS (3)
  1. AMIODARONE HYDROCHLORIDE TABLETS [Suspect]
     Indication: ATRIAL FIBRILLATION
     Dosage: 400 MG, TID
     Route: 048
     Dates: start: 201307
  2. ATENOLOL [Concomitant]
     Dosage: UNK DF, UNK
  3. LOTENSIN [Concomitant]
     Dosage: UNK DF, UNK

REACTIONS (3)
  - Pulmonary oedema [Recovered/Resolved]
  - Dyspnoea [Recovered/Resolved]
  - Nausea [Recovered/Resolved]
